FAERS Safety Report 13192193 (Version 2)
Quarter: 2018Q2

REPORT INFORMATION
  Report Type: Report from Study
  Country: KR (occurrence: KR)
  Receive Date: 20170207
  Receipt Date: 20180530
  Transmission Date: 20180711
  Serious: Yes (Hospitalization)
  Sender: FDA-Public Use
  Company Number: KR-EISAI MEDICAL RESEARCH-E7389-04786-SOL-KR

PATIENT
  Age: 41 Year
  Sex: Female
  Weight: 52 kg

DRUGS (6)
  1. LUTHIONE [Concomitant]
  2. NESP [Concomitant]
     Active Substance: DARBEPOETIN ALFA
  3. LEGALON [Concomitant]
     Active Substance: DIETARY SUPPLEMENT\HERBALS\MILK THISTLE
  4. ZOMEBON [Concomitant]
  5. HALAVEN [Suspect]
     Active Substance: ERIBULIN MESYLATE
     Indication: BREAST CANCER METASTATIC
     Route: 041
     Dates: start: 20131031, end: 20131031
  6. HALAVEN [Suspect]
     Active Substance: ERIBULIN MESYLATE
     Route: 041
     Dates: start: 20131111, end: 20140106

REACTIONS (2)
  - Diarrhoea [Recovered/Resolved]
  - Neutropenia [Recovered/Resolved]

NARRATIVE: CASE EVENT DATE: 20131106
